FAERS Safety Report 5068381-6 (Version None)
Quarter: 2006Q3

REPORT INFORMATION
  Report Type: 
  Country: None (occurrence: None)
  Receive Date: 20060728
  Receipt Date: 20060713
  Transmission Date: 20061208
  Serious: Yes (Life-Threatening, Hospitalization)
  Sender: FDA-Public Use
  Company Number: BE200602004743

PATIENT
  Age: 66 Year
  Sex: Male
  Weight: 75 kg

DRUGS (1)
  1. OLANZAPINE [Suspect]
     Indication: MANIA
     Dosage: 10 MG DAILY (1/D), INTRAMUSCULAR
     Route: 030
     Dates: start: 20060222, end: 20060222

REACTIONS (4)
  - CARDIAC ARREST [None]
  - COMA [None]
  - GRAND MAL CONVULSION [None]
  - SALIVARY HYPERSECRETION [None]
